FAERS Safety Report 11167238 (Version 7)
Quarter: 2016Q1

REPORT INFORMATION
  Report Type: Spontaneous
  Country: JP (occurrence: JP)
  Receive Date: 20150605
  Receipt Date: 20160120
  Transmission Date: 20160525
  Serious: Yes (Death, Hospitalization, Other)
  Sender: FDA-Public Use
  Company Number: JP-ABBVIE-15K-087-1400794-00

PATIENT
  Age: 28 Year
  Sex: Male
  Weight: 54.2 kg

DRUGS (7)
  1. HUMIRA [Suspect]
     Active Substance: ADALIMUMAB
     Route: 058
     Dates: start: 20150519, end: 20150519
  2. HUMIRA [Suspect]
     Active Substance: ADALIMUMAB
     Route: 058
     Dates: start: 20150504, end: 20150504
  3. HUMIRA [Suspect]
     Active Substance: ADALIMUMAB
     Indication: CROHN^S DISEASE
     Route: 058
     Dates: start: 20150421, end: 20150421
  4. ELENTAL [Concomitant]
     Active Substance: AMINO ACIDS\CARBOHYDRATES\MINERALS\SOYBEAN OIL\VITAMINS
     Indication: PRODUCT USED FOR UNKNOWN INDICATION
  5. PREDNISOLONE. [Concomitant]
     Active Substance: PREDNISOLONE
     Indication: PRODUCT USED FOR UNKNOWN INDICATION
  6. RACOL [Concomitant]
     Active Substance: AMINO ACIDS\DEXTROSE\ELECTROLYTES NOS
     Indication: PRODUCT USED FOR UNKNOWN INDICATION
  7. METRONIDAZOLE. [Concomitant]
     Active Substance: METRONIDAZOLE
     Indication: PRODUCT USED FOR UNKNOWN INDICATION

REACTIONS (31)
  - Gastrointestinal hypermotility [Recovering/Resolving]
  - Bone marrow infiltration [Unknown]
  - Red blood cell count decreased [Unknown]
  - Band neutrophil count increased [Unknown]
  - Lymphocyte count decreased [Unknown]
  - Epstein-Barr virus associated lymphoproliferative disorder [Unknown]
  - Peripheral swelling [Unknown]
  - Blood lactate dehydrogenase increased [Unknown]
  - Monocyte count increased [Unknown]
  - Aspartate aminotransferase increased [Unknown]
  - Eosinophil count decreased [Unknown]
  - Lymphoma [Fatal]
  - Intestinal fibrosis [Unknown]
  - Renal disorder [Recovered/Resolved]
  - Blood creatinine increased [Unknown]
  - Gastrointestinal necrosis [Unknown]
  - Peritonitis [Unknown]
  - Bilirubin conjugated increased [Unknown]
  - Haemoglobin decreased [Unknown]
  - Abdominal mass [Unknown]
  - Gamma-glutamyltransferase increased [Unknown]
  - White blood cell count increased [Unknown]
  - Red blood cell sedimentation rate increased [Unknown]
  - Diffuse large B-cell lymphoma [Fatal]
  - Immunodeficiency [Unknown]
  - Abdominal rigidity [Unknown]
  - Large intestinal haemorrhage [Unknown]
  - Blood alkaline phosphatase increased [Unknown]
  - Blood urea increased [Unknown]
  - Haematocrit decreased [Unknown]
  - Platelet count decreased [Unknown]

NARRATIVE: CASE EVENT DATE: 2015
